FAERS Safety Report 14347682 (Version 1)
Quarter: 2018Q1

REPORT INFORMATION
  Report Type: Spontaneous
  Country: GB (occurrence: GB)
  Receive Date: 20180103
  Receipt Date: 20180103
  Transmission Date: 20180509
  Serious: Yes (Other)
  Sender: FDA-Public Use
  Company Number: GB-MYLANLABS-2018M1000148

PATIENT
  Age: 59 Year
  Sex: Male

DRUGS (1)
  1. DEXAMETHASONE. [Suspect]
     Active Substance: DEXAMETHASONE
     Indication: COLORECTAL CANCER METASTATIC
     Dosage: UNK
     Route: 048

REACTIONS (3)
  - Visual impairment [Unknown]
  - Glaucoma [Unknown]
  - Intraocular pressure increased [Unknown]
